FAERS Safety Report 12205833 (Version 1)
Quarter: 2016Q1

REPORT INFORMATION
  Report Type: Spontaneous
  Country: KR (occurrence: KR)
  Receive Date: 20160323
  Receipt Date: 20160323
  Transmission Date: 20160526
  Serious: Yes (Hospitalization, Other)
  Sender: FDA-Public Use
  Company Number: KR-JNJFOC-20160309924

PATIENT
  Age: 51 Year
  Sex: Male

DRUGS (10)
  1. ACETAMINOPHEN. [Suspect]
     Active Substance: ACETAMINOPHEN
     Route: 048
  2. AMOXICILLIN. [Concomitant]
     Active Substance: AMOXICILLIN
     Indication: PHARYNGITIS
     Route: 048
  3. DEXIBUPROFEN [Suspect]
     Active Substance: DEXIBUPROFEN
     Indication: PHARYNGITIS
     Dosage: 3 TABLETS PER DAY.
     Route: 065
  4. LOXOPROFEN [Suspect]
     Active Substance: LOXOPROFEN
     Indication: PHARYNGITIS
     Dosage: 300 MG PER DAY
     Route: 065
  5. TRIMEBUTINE MALEATE [Concomitant]
     Active Substance: TRIMEBUTINE MALEATE
     Indication: PRODUCT USED FOR UNKNOWN INDICATION
     Dosage: 300 MG/DAY
     Route: 048
  6. ACETYLCYSTEINE. [Concomitant]
     Active Substance: ACETYLCYSTEINE
     Indication: PRODUCT USED FOR UNKNOWN INDICATION
     Route: 048
  7. PSEUDOEPHEDRINE HYDROCHOLORIDE [Concomitant]
     Indication: PHARYNGITIS
     Dosage: 3 TAB PER DAY
     Route: 048
  8. ACETAMINOPHEN. [Suspect]
     Active Substance: ACETAMINOPHEN
     Indication: PRODUCT USED FOR UNKNOWN INDICATION
     Dosage: 900 MG/ DAY
     Route: 048
  9. AMOXICILLIN. [Concomitant]
     Active Substance: AMOXICILLIN
     Indication: PHARYNGITIS
     Dosage: 150 MG/DAY
     Route: 048
  10. MEFENAMIC ACID. [Concomitant]
     Active Substance: MEFENAMIC ACID
     Indication: PRODUCT USED FOR UNKNOWN INDICATION
     Dosage: 1500 MG/DAY
     Route: 048

REACTIONS (1)
  - Renal infarct [Recovered/Resolved]
